FAERS Safety Report 4963823-6 (Version None)
Quarter: 2006Q1

REPORT INFORMATION
  Report Type: 
  Country: None (occurrence: None)
  Receive Date: 20060330
  Receipt Date: 20060310
  Transmission Date: 20060701
  Serious: Yes (Hospitalization, Other)
  Sender: FDA-Public Use
  Company Number: CA200601000773

PATIENT
  Sex: Male

DRUGS (2)
  1. HUMULIN 70/30 [Suspect]
     Dosage: 88 U, DAILY (1/D)
     Dates: start: 19930101
  2. HP ERGO (HUMAPEN ERGO, UNKNOWN PEN BODY TYPE) PEN, REUSABLE [Concomitant]

REACTIONS (3)
  - BLOOD GLUCOSE INCREASED [None]
  - COLON CANCER [None]
  - FALL [None]
